FAERS Safety Report 9832005 (Version 1)
Quarter: 2014Q1

REPORT INFORMATION
  Report Type: Spontaneous
  Country: GB (occurrence: GB)
  Receive Date: 20140121
  Receipt Date: 20140121
  Transmission Date: 20141002
  Serious: Yes (Life-Threatening, Hospitalization, Other)
  Sender: FDA-Public Use
  Company Number: GB-JNJFOC-20140106842

PATIENT
  Age: 76 Year
  Sex: Male
  Weight: 70 kg

DRUGS (10)
  1. XARELTO [Suspect]
     Indication: CEREBROVASCULAR ACCIDENT PROPHYLAXIS
     Route: 048
     Dates: start: 20131001, end: 20140103
  2. XARELTO [Suspect]
     Indication: ATRIAL FIBRILLATION
     Route: 048
     Dates: start: 20131001, end: 20140103
  3. MELOXICAM [Suspect]
     Indication: PAIN
     Route: 048
     Dates: start: 20140102, end: 20140103
  4. TADALAFIL [Concomitant]
     Route: 065
  5. LOSARTAN [Concomitant]
     Route: 065
  6. MORPHINE SULPHATE [Concomitant]
     Route: 065
  7. OMEPRAZOLE [Concomitant]
     Route: 065
  8. FUROSEMIDE [Concomitant]
     Route: 065
  9. DOXAZOSIN [Concomitant]
     Route: 065
  10. FYBOGEL [Concomitant]
     Route: 065

REACTIONS (4)
  - Nystagmus [Unknown]
  - Vertigo [Unknown]
  - Cerebral haemorrhage [Not Recovered/Not Resolved]
  - Vomiting [Unknown]
